FAERS Safety Report 6951115-5 (Version None)
Quarter: 2010Q3

REPORT INFORMATION
  Report Type: 
  Country: None (occurrence: None)
  Receive Date: 20100828
  Receipt Date: 20100304
  Transmission Date: 20110219
  Serious: No
  Sender: FDA-Public Use
  Company Number: US-ABBOTT-10P-163-0631957-00

PATIENT
  Sex: Male
  Weight: 92.616 kg

DRUGS (13)
  1. NIASPAN [Suspect]
     Indication: HIGH DENSITY LIPOPROTEIN DECREASED
     Dates: start: 19990101, end: 19990101
  2. NIASPAN [Suspect]
     Dates: start: 20100101, end: 20100301
  3. NIASPAN [Suspect]
     Dates: start: 20100301
  4. DIOVAN HCT [Concomitant]
     Indication: HYPERTENSION
     Dosage: 160/25MG DAILY
  5. ISOSORBIDE [Concomitant]
     Indication: HYPERTENSION
  6. ISOSORBIDE [Concomitant]
     Indication: CARDIAC DISORDER
  7. NITROGLYCERIN [Concomitant]
     Indication: CHEST PAIN
     Route: 060
     Dates: start: 19940101
  8. ALLOPURINOL [Concomitant]
     Indication: GOUT
     Dosage: AS DIRECTED
  9. PREDNISONE [Concomitant]
     Indication: GOUT
  10. PROBENECID [Concomitant]
     Indication: GOUT
  11. VYTORIN [Concomitant]
     Indication: BLOOD CHOLESTEROL INCREASED
     Dosage: 10/20MG DAILY
  12. PROGRAF [Concomitant]
     Indication: RENAL TRANSPLANT
     Dates: start: 20070401
  13. CELL CEPT [Concomitant]
     Indication: RENAL TRANSPLANT
     Dates: start: 20070401

REACTIONS (3)
  - EYELIDS PRURITUS [None]
  - FLUSHING [None]
  - PRURITUS GENERALISED [None]
